FAERS Safety Report 23586254 (Version 1)
Quarter: 2024Q1

REPORT INFORMATION
  Report Type: Spontaneous
  Country: US (occurrence: None)
  Receive Date: 20240301
  Receipt Date: 20240301
  Transmission Date: 20240410
  Serious: Yes (Death)
  Sender: FDA-Public Use
  Company Number: None

PATIENT
  Age: 88 Year
  Sex: Female

DRUGS (1)
  1. EVENITY [Suspect]
     Active Substance: ROMOSOZUMAB-AQQG
     Indication: Osteoporosis
     Dosage: FREQ: INJECT 210MG UNDER THE SKIN (SUBCUTANEOUS INJECTION) ONCE A MONTH??THERAPY STOPPED ON: NOT REP
     Route: 058
     Dates: start: 20231107

REACTIONS (1)
  - Death [None]

NARRATIVE: CASE EVENT DATE: 20240220
